FAERS Safety Report 10208618 (Version 3)
Quarter: 2014Q4

REPORT INFORMATION
  Report Type: Spontaneous
  Country: US (occurrence: US)
  Receive Date: 20140530
  Receipt Date: 20141009
  Transmission Date: 20150528
  Serious: Yes (Other)
  Sender: FDA-Public Use
  Company Number: US-ASTELLAS-2014US005969

PATIENT
  Age: 84 Year
  Sex: Female

DRUGS (3)
  1. MYRBETRIQ [Suspect]
     Active Substance: MIRABEGRON
     Route: 065
  2. MYRBETRIQ [Suspect]
     Active Substance: MIRABEGRON
     Indication: HYPERTONIC BLADDER
     Route: 048
     Dates: start: 20140501
  3. MYRBETRIQ [Suspect]
     Active Substance: MIRABEGRON
     Dosage: 50 UNK, UNK
     Route: 048

REACTIONS (5)
  - Nocturia [Unknown]
  - Urinary retention [Recovered/Resolved]
  - Drug ineffective [Unknown]
  - Urinary incontinence [Not Recovered/Not Resolved]
  - Intentional product use issue [Unknown]

NARRATIVE: CASE EVENT DATE: 201404
